FAERS Safety Report 15979375 (Version 1)
Quarter: 2019Q1

REPORT INFORMATION
  Report Type: Spontaneous
  Country: US (occurrence: US)
  Receive Date: 20190219
  Receipt Date: 20190219
  Transmission Date: 20190418
  Serious: Yes (Hospitalization)
  Sender: FDA-Public Use
  Company Number: US-ASTRAZENECA-2019SE25275

PATIENT
  Age: 29829 Day
  Sex: Female
  Weight: 82.6 kg

DRUGS (9)
  1. OMEPRAZOLE. [Suspect]
     Active Substance: OMEPRAZOLE
     Indication: ABDOMINAL DISCOMFORT
     Route: 048
  2. SYMBICORT [Suspect]
     Active Substance: BUDESONIDE\FORMOTEROL FUMARATE DIHYDRATE
     Indication: LUNG DISORDER
     Dosage: 160/4.5 MCG 2 PUFFS TWICE PER DAY
     Route: 055
     Dates: start: 20190210
  3. SYMBICORT [Suspect]
     Active Substance: BUDESONIDE\FORMOTEROL FUMARATE DIHYDRATE
     Indication: ASTHMA
     Dosage: 160/4.5 MCG 2 PUFFS TWICE PER DAY
     Route: 055
     Dates: start: 20190210
  4. VITAMIN B12 [Concomitant]
     Active Substance: CYANOCOBALAMIN
  5. IRON [Concomitant]
     Active Substance: IRON
  6. PRAVASTATIN. [Concomitant]
     Active Substance: PRAVASTATIN
     Indication: BLOOD CHOLESTEROL
     Route: 048
  7. VITAMIN B6 [Concomitant]
     Active Substance: PYRIDOXINE HYDROCHLORIDE
  8. LEVOTHYROXINE. [Concomitant]
     Active Substance: LEVOTHYROXINE
     Indication: THYROID DISORDER
     Route: 048
  9. CALCIUM  WITH VIT. D [Concomitant]
     Route: 048

REACTIONS (8)
  - Off label use [Unknown]
  - Body height decreased [Unknown]
  - Sciatica [Unknown]
  - Headache [Unknown]
  - Product use in unapproved indication [Unknown]
  - Feeling abnormal [Unknown]
  - Breast cancer female [Unknown]
  - Dizziness [Unknown]

NARRATIVE: CASE EVENT DATE: 201603
